FAERS Safety Report 5294581-6 (Version None)
Quarter: 2007Q2

REPORT INFORMATION
  Report Type: 
  Country: None (occurrence: None)
  Receive Date: 20070412
  Receipt Date: 20070402
  Transmission Date: 20071010
  Serious: Yes (Other)
  Sender: FDA-Public Use
  Company Number: 2007AP01984

PATIENT
  Age: 30 Year
  Sex: Female

DRUGS (1)
  1. XYLOCAINE [Suspect]
     Route: 042

REACTIONS (2)
  - CONVULSION [None]
  - OSTEOPOROSIS [None]
